FAERS Safety Report 10589837 (Version 1)
Quarter: 2014Q4

REPORT INFORMATION
  Report Type: Spontaneous
  Country: US (occurrence: None)
  Receive Date: 20141117
  Receipt Date: 20141117
  Transmission Date: 20150529
  Serious: No
  Sender: FDA-Public Use
  Company Number: None

PATIENT
  Age: 49 Year
  Sex: Female
  Weight: 79.38 kg

DRUGS (3)
  1. HYDROCODONE [Suspect]
     Active Substance: HYDROCODONE
     Indication: MIGRAINE
     Route: 048
     Dates: start: 20141017, end: 20141113
  2. HYDROCODONE [Suspect]
     Active Substance: HYDROCODONE
     Indication: ARNOLD-CHIARI MALFORMATION
     Route: 048
     Dates: start: 20141017, end: 20141113
  3. HYDROCODONE [Suspect]
     Active Substance: HYDROCODONE
     Indication: BACK INJURY
     Route: 048
     Dates: start: 20141017, end: 20141113

REACTIONS (2)
  - Drug ineffective [None]
  - Product quality issue [None]

NARRATIVE: CASE EVENT DATE: 20141015
